FAERS Safety Report 7498525-8 (Version None)
Quarter: 2011Q2

REPORT INFORMATION
  Report Type: 
  Country: None (occurrence: None)
  Receive Date: 20110516
  Receipt Date: 20110502
  Transmission Date: 20111010
  Serious: Yes (Hospitalization)
  Sender: FDA-Public Use
  Company Number: 032094

PATIENT
  Sex: Female

DRUGS (8)
  1. VANCOMYCIN (VANCOMUCINE MYLAN) [Suspect]
     Dosage: 2.5 MG, INTRAVENOUS
     Route: 042
     Dates: start: 20110325, end: 20110406
  2. OXYNORM (OXYNORM) [Suspect]
     Dosage: 5 MG, BID, ORAL
     Route: 048
     Dates: start: 20110326, end: 20110327
  3. XYZALL /01530201/ (XYZALL) [Suspect]
     Dosage: 5 MG, ORAL
     Route: 048
     Dates: start: 20110331, end: 20110402
  4. DALACINE /00166003/ (DALACINE) [Suspect]
     Dosage: 600 MG, TID, ORAL
     Route: 048
     Dates: start: 20110325, end: 20110329
  5. NOVORAPID [Concomitant]
  6. LANTUS [Concomitant]
  7. TOPALGIC LP (TOPALGIC LP) (NOT SPECIFIED) [Suspect]
     Dosage: 100 MG, BID, ORAL
     Route: 048
     Dates: start: 20110325, end: 20110402
  8. CEFTRIAXONE PANPHARMA (CEFTRIAXONE PANPHARMA) [Suspect]
     Dosage: 2 G, INTRAVENOUS
     Route: 042
     Dates: start: 20110329, end: 20110406

REACTIONS (4)
  - TOE AMPUTATION [None]
  - EPSTEIN-BARR VIRUS ANTIBODY POSITIVE [None]
  - CYTOMEGALOVIRUS TEST POSITIVE [None]
  - HEPATITIS CHOLESTATIC [None]
